FAERS Safety Report 13452226 (Version 1)
Quarter: 2017Q2

REPORT INFORMATION
  Report Type: Spontaneous
  Country: US (occurrence: US)
  Receive Date: 20170418
  Receipt Date: 20170418
  Transmission Date: 20170830
  Serious: No
  Sender: FDA-Public Use
  Company Number: GXBR2017US001196

PATIENT
  Sex: Female
  Weight: 62.59 kg

DRUGS (1)
  1. GLATOPA [Suspect]
     Active Substance: GLATIRAMER ACETATE
     Indication: MULTIPLE SCLEROSIS
     Dosage: 20 MG, QD
     Route: 058
     Dates: start: 201701, end: 201703

REACTIONS (7)
  - Injection site reaction [Unknown]
  - Superficial vein prominence [Recovering/Resolving]
  - Oedema [Recovering/Resolving]
  - Skin tightness [Recovering/Resolving]
  - Gait disturbance [Not Recovered/Not Resolved]
  - Peripheral vascular disorder [Recovering/Resolving]
  - Muscular weakness [Not Recovered/Not Resolved]
